FAERS Safety Report 14956867 (Version 2)
Quarter: 2019Q1

REPORT INFORMATION
  Report Type: Spontaneous
  Country: DE (occurrence: DE)
  Receive Date: 20180531
  Receipt Date: 20190329
  Transmission Date: 20190417
  Serious: Yes (Hospitalization, Other)
  Sender: FDA-Public Use
  Company Number: DE-SUN PHARMACEUTICAL INDUSTRIES LTD-2018RR-174399

PATIENT
  Age: 77 Year
  Sex: Male

DRUGS (9)
  1. IBUPROFEN. [Concomitant]
     Active Substance: IBUPROFEN
     Indication: ARTHRALGIA
     Dosage: DAILY DOSE: 1800 MG MILLIGRAM(S) EVERY DAY
     Route: 048
     Dates: start: 20170216, end: 20170223
  2. INFLANEFRAN [Concomitant]
     Active Substance: PREDNISOLONE ACETATE
     Dosage: DAILY DOSE: 3 GTT DROP(S) EVERY DAY
     Route: 047
     Dates: start: 20170124, end: 20170130
  3. L-THYROXIN [Concomitant]
     Active Substance: LEVOTHYROXINE SODIUM
     Indication: HYPOTHYROIDISM
     Dosage: DAILY DOSE: 75 UG MICROGRAM(S) EVERY DAY
     Route: 048
     Dates: start: 2015
  4. CANDESARTAN. [Concomitant]
     Active Substance: CANDESARTAN
     Indication: HYPERTENSION
     Dosage: DAILY DOSE: 32 MG MILLIGRAM(S) EVERY DAY
     Route: 048
     Dates: start: 2012
  5. INFLANEFRAN [Concomitant]
     Active Substance: PREDNISOLONE ACETATE
     Indication: PROPHYLAXIS
     Dosage: DAILY DOSE: 3 GTT DROP(S) EVERY DAY
     Route: 047
     Dates: start: 20170207, end: 20170213
  6. INFLANEFRAN [Concomitant]
     Active Substance: PREDNISOLONE ACETATE
     Dosage: DAILY DOSE: 3 GTT DROP(S) EVERY DAY
     Route: 047
     Dates: start: 20170222, end: 20170228
  7. ABT-414 [Suspect]
     Active Substance: DEPATUXIZUMAB MAFODOTIN
     Indication: GLIOBLASTOMA MULTIFORME
     Dosage: UNK ()
     Route: 042
     Dates: start: 20170126
  8. TEMOZOLOMIDE. [Suspect]
     Active Substance: TEMOZOLOMIDE
     Indication: GLIOBLASTOMA MULTIFORME
     Dosage: 75 MG/M2, QD
     Route: 048
     Dates: start: 20170126
  9. PANTOZOL [Concomitant]
     Active Substance: PANTOPRAZOLE SODIUM
     Indication: GASTROOESOPHAGEAL REFLUX DISEASE
     Dosage: DAILY DOSE: 20 MG MILLIGRAM(S) EVERY DAY
     Route: 048
     Dates: start: 2012

REACTIONS (1)
  - Seizure [Recovered/Resolved]

NARRATIVE: CASE EVENT DATE: 20170225
